FAERS Safety Report 6585791 (Version 3)
Quarter: 2017Q1

REPORT INFORMATION
  Report Type: Spontaneous
  Country: JP (occurrence: JP)
  Receive Date: 20080317
  Receipt Date: 20170213
  Transmission Date: 20170429
  Serious: Yes (Other)
  Sender: FDA-Public Use
  Company Number: JP-BRISTOL-MYERS SQUIBB COMPANY-14116420

PATIENT
  Age: 52 Year
  Sex: Female

DRUGS (2)
  1. TAXOL [Suspect]
     Active Substance: PACLITAXEL
     Indication: VAGINAL CANCER
     Dosage: UNK
     Route: 041
  2. PARAPLATIN [Suspect]
     Active Substance: CARBOPLATIN
     Indication: VAGINAL CANCER
     Dosage: UNK
     Route: 041

REACTIONS (2)
  - Rhabdomyolysis [Recovering/Resolving]
  - Generalised oedema [Recovering/Resolving]
